FAERS Safety Report 11629866 (Version 1)
Quarter: 2015Q4

REPORT INFORMATION
  Report Type: Report from Study
  Country: US (occurrence: US)
  Receive Date: 20151014
  Receipt Date: 20151014
  Transmission Date: 20160304
  Serious: No
  Sender: FDA-Public Use
  Company Number: US-CELGENEUS-USA-2015086681

PATIENT
  Sex: Male

DRUGS (2)
  1. REVLIMID [Suspect]
     Active Substance: LENALIDOMIDE
     Indication: OFF LABEL USE
     Route: 048
  2. SIROLIMUS. [Concomitant]
     Active Substance: SIROLIMUS
     Indication: NON-HODGKIN^S LYMPHOMA
     Route: 048

REACTIONS (5)
  - Full blood count decreased [Unknown]
  - Constipation [Unknown]
  - Peripheral swelling [Unknown]
  - Joint swelling [Unknown]
  - Lethargy [Unknown]
